FAERS Safety Report 8559211-6 (Version None)
Quarter: 2012Q3

REPORT INFORMATION
  Report Type: 
  Country: None (occurrence: None)
  Receive Date: 20120802
  Receipt Date: 20120723
  Transmission Date: 20120928
  Serious: Yes (Death, Hospitalization)
  Sender: FDA-Public Use
  Company Number: PL-BRISTOL-MYERS SQUIBB COMPANY-16795536

PATIENT
  Age: 17 Year
  Sex: Male

DRUGS (9)
  1. CEFEPIME [Suspect]
  2. IFOSFAMIDE [Suspect]
     Indication: EWING'S SARCOMA METASTATIC
  3. DOXORUBICIN HYDROCHLORIDE [Suspect]
     Indication: EWING'S SARCOMA METASTATIC
  4. VINCRISTINE [Suspect]
     Indication: EWING'S SARCOMA METASTATIC
  5. METRONIDAZOLE [Suspect]
  6. ETOPOSIDE [Suspect]
     Indication: EWING'S SARCOMA METASTATIC
  7. NETROMYCIN [Suspect]
  8. FLUCONAZOLE [Suspect]
  9. CASPOFUNGIN ACETATE [Suspect]

REACTIONS (3)
  - CLOSTRIDIAL INFECTION [None]
  - RHABDOMYOLYSIS [None]
  - PANCYTOPENIA [None]
